FAERS Safety Report 4764701-8 (Version None)
Quarter: 2005Q3

REPORT INFORMATION
  Report Type: 
  Country: None (occurrence: None)
  Receive Date: 20050909
  Receipt Date: 20050418
  Transmission Date: 20060218
  Serious: Yes (Hospitalization, Disabling)
  Sender: FDA-Public Use
  Company Number: US-MERCK-0504USA03512

PATIENT
  Age: 52 Year
  Sex: Female
  Weight: 61 kg

DRUGS (5)
  1. VIOXX [Suspect]
     Indication: ARTHRITIS
     Route: 048
     Dates: start: 20020101, end: 20040930
  2. LIPITOR [Concomitant]
     Route: 065
  3. EXCEDRIN (ACETAMINOPHEN (+) CAFFEINE) [Concomitant]
     Route: 065
  4. PREMARIN [Concomitant]
     Route: 065
     Dates: start: 19800101
  5. AVALIDE [Concomitant]
     Route: 065

REACTIONS (6)
  - BASAL CELL CARCINOMA [None]
  - CARDIOMYOPATHY [None]
  - CHEST DISCOMFORT [None]
  - CHEST PAIN [None]
  - CORONARY ARTERY DISEASE [None]
  - MYOCARDIAL INFARCTION [None]
